FAERS Safety Report 20363400 (Version 1)
Quarter: 2022Q1

REPORT INFORMATION
  Report Type: Spontaneous
  Country: US (occurrence: None)
  Receive Date: 20220121
  Receipt Date: 20220121
  Transmission Date: 20220423
  Serious: Yes (Other)
  Sender: FDA-Public Use
  Company Number: 2022A023519

PATIENT
  Age: 713 Month
  Sex: Female

DRUGS (2)
  1. SYMBICORT [Suspect]
     Active Substance: BUDESONIDE\FORMOTEROL FUMARATE DIHYDRATE
     Indication: Asthma
     Dosage: 80/4.5 UG TWO PUFFS TWICE DAILY
     Route: 055
     Dates: start: 2012
  2. SYMBICORT [Suspect]
     Active Substance: BUDESONIDE\FORMOTEROL FUMARATE DIHYDRATE
     Indication: Asthma
     Dosage: 160/4.5 UG TWO PUFFS TWICE DAILY
     Route: 055
     Dates: start: 2020

REACTIONS (4)
  - Post-traumatic neck syndrome [Recovered/Resolved]
  - Road traffic accident [Recovered/Resolved]
  - Asthma [Recovering/Resolving]
  - Asthma exercise induced [Unknown]

NARRATIVE: CASE EVENT DATE: 20191201
